FAERS Safety Report 9068578 (Version 1)
Quarter: 2013Q1

REPORT INFORMATION
  Report Type: Spontaneous
  Country: US (occurrence: None)
  Receive Date: 20130212
  Receipt Date: 20130212
  Transmission Date: 20140127
  Serious: Yes (Other)
  Sender: FDA-Public Use
  Company Number: None

PATIENT
  Age: 37 Year
  Sex: Female
  Weight: 82 kg

DRUGS (2)
  1. ADACEL TDAP [Suspect]
     Route: 030
     Dates: start: 20130123, end: 20130123
  2. DECAVAC 5-2 LFU, SANOFI PASTEUR [Suspect]
     Route: 030
     Dates: start: 20130123, end: 20130123

REACTIONS (1)
  - Wrong drug administered [None]
